FAERS Safety Report 9977928 (Version 1)
Quarter: 2014Q1

REPORT INFORMATION
  Report Type: Report from Study
  Country: US (occurrence: US)
  Receive Date: 20140306
  Receipt Date: 20140306
  Transmission Date: 20141002
  Serious: No
  Sender: FDA-Public Use
  Company Number: US-ABBVIE-13P-163-1161964-00

PATIENT
  Age: 57 Year
  Sex: Female

DRUGS (10)
  1. HUMIRA [Suspect]
     Indication: COLITIS ULCERATIVE
     Route: 058
     Dates: start: 201307, end: 20131024
  2. HUMIRA [Suspect]
     Route: 058
     Dates: start: 20131003
  3. ASACOL HD [Concomitant]
     Indication: COLITIS ULCERATIVE
     Route: 048
  4. BUPROPION [Concomitant]
     Indication: DEPRESSION
     Route: 048
  5. CYMBALTA [Concomitant]
     Indication: DEPRESSION
     Route: 048
  6. ALLEGRA [Concomitant]
     Indication: HYPERSENSITIVITY
  7. ESTRADIOL [Concomitant]
     Indication: MENOPAUSE
  8. ESTRADIOL [Concomitant]
     Indication: MENOPAUSE
  9. PREDNISONE [Concomitant]
     Indication: COLITIS ULCERATIVE
  10. PREDNISONE [Concomitant]
     Dates: start: 20131022

REACTIONS (3)
  - Feeling abnormal [Not Recovered/Not Resolved]
  - Haemorrhage [Not Recovered/Not Resolved]
  - Drug ineffective [Not Recovered/Not Resolved]
